FAERS Safety Report 8695040 (Version 2)
Quarter: 2013Q4

REPORT INFORMATION
  Report Type: Spontaneous
  Country: GB (occurrence: GB)
  Receive Date: 20120731
  Receipt Date: 20131106
  Transmission Date: 20140711
  Serious: Yes (Other)
  Sender: FDA-Public Use
  Company Number: GB-009507513-1207GBR011184

PATIENT
  Age: 49 Year
  Sex: Female
  Weight: 63.5 kg

DRUGS (3)
  1. LOSARTAN POTASSIUM [Suspect]
     Indication: DIASTOLIC HYPERTENSION
     Dosage: 50 MG, UNK
     Route: 048
     Dates: start: 20120601
  2. LEVOTHYROXINE SODIUM [Concomitant]
  3. SIMVASTATIN [Concomitant]

REACTIONS (1)
  - Constipation [Unknown]
